FAERS Safety Report 12644518 (Version 1)
Quarter: 2016Q3

REPORT INFORMATION
  Report Type: Spontaneous
  Country: US (occurrence: US)
  Receive Date: 20160811
  Receipt Date: 20160811
  Transmission Date: 20161109
  Serious: No
  Sender: FDA-Public Use
  Company Number: US-TARO-2016TAR00562

PATIENT
  Sex: Female

DRUGS (1)
  1. CLOBETASOL PROPIONATE OINTMENT USP 0.05% [Suspect]
     Active Substance: CLOBETASOL PROPIONATE
     Dosage: UNK; USED ON AND OFF
     Dates: start: 2009

REACTIONS (3)
  - Skin irritation [Unknown]
  - Skin discolouration [Not Recovered/Not Resolved]
  - Skin burning sensation [Unknown]
